FAERS Safety Report 17696208 (Version 2)
Quarter: 2020Q3

REPORT INFORMATION
  Report Type: Spontaneous
  Country: US (occurrence: US)
  Receive Date: 20200423
  Receipt Date: 20200831
  Transmission Date: 20201102
  Serious: Yes (Disabling, Other)
  Sender: FDA-Public Use
  Company Number: US-NAPPMUNDI-USA-2020-0151208

PATIENT

DRUGS (2)
  1. OXYCODONE HYDROCHLORIDE (SIMILAR TO NDA 22?272) [Suspect]
     Active Substance: OXYCODONE HYDROCHLORIDE
     Indication: PRODUCT USED FOR UNKNOWN INDICATION
     Dosage: UNK
     Route: 048
     Dates: end: 20180721
  2. OXYCONTIN [Suspect]
     Active Substance: OXYCODONE HYDROCHLORIDE
     Indication: PRODUCT USED FOR UNKNOWN INDICATION
     Dosage: UNK
     Route: 048
     Dates: end: 20180721

REACTIONS (16)
  - Depressed mood [Unknown]
  - Confusional state [Unknown]
  - Aggression [Unknown]
  - Asthenia [Unknown]
  - Sudden onset of sleep [Unknown]
  - Daydreaming [Unknown]
  - Frustration tolerance decreased [Unknown]
  - Judgement impaired [Unknown]
  - Anxiety [Unknown]
  - Quality of life decreased [Unknown]
  - Drug dependence [Unknown]
  - Intentional self-injury [Unknown]
  - Self esteem decreased [Unknown]
  - Disturbance in attention [Unknown]
  - Disability [Unknown]
  - Antisocial behaviour [Unknown]

NARRATIVE: CASE EVENT DATE: 2014
